FAERS Safety Report 13717415 (Version 1)
Quarter: 2017Q3

REPORT INFORMATION
  Report Type: Spontaneous
  Country: US (occurrence: US)
  Receive Date: 20170705
  Receipt Date: 20170705
  Transmission Date: 20171127
  Serious: Yes (Hospitalization, Other)
  Sender: FDA-Public Use
  Company Number: US-TAKEDA-2017MPI005871

PATIENT

DRUGS (14)
  1. VINCRISTINE [Suspect]
     Active Substance: VINCRISTINE
     Indication: LYMPHOMA
     Dosage: UNK
     Route: 065
  2. VELCADE [Suspect]
     Active Substance: BORTEZOMIB
     Indication: LYMPHOMA
  3. PREDNISONE. [Suspect]
     Active Substance: PREDNISONE
     Indication: LEUKAEMIA
     Dosage: UNK
     Route: 065
  4. VELCADE [Suspect]
     Active Substance: BORTEZOMIB
     Indication: LEUKAEMIA
     Dosage: UNK
     Route: 065
  5. DOXORUBICIN HYDROCHLORIDE. [Suspect]
     Active Substance: DOXORUBICIN HYDROCHLORIDE
     Indication: LEUKAEMIA
     Dosage: UNK
     Route: 065
  6. ETOPOSIDE. [Suspect]
     Active Substance: ETOPOSIDE
     Indication: LEUKAEMIA
     Dosage: UNK
     Route: 065
  7. VINCRISTINE [Suspect]
     Active Substance: VINCRISTINE
     Indication: LEUKAEMIA
     Dosage: UNK
     Route: 065
  8. DOXORUBICIN HYDROCHLORIDE. [Suspect]
     Active Substance: DOXORUBICIN HYDROCHLORIDE
     Indication: LYMPHOMA
  9. CYCLOPHOSPHAMIDE. [Suspect]
     Active Substance: CYCLOPHOSPHAMIDE
     Indication: LYMPHOMA
  10. PREDNISONE. [Suspect]
     Active Substance: PREDNISONE
     Indication: LYMPHOMA
  11. CYCLOPHOSPHAMIDE. [Suspect]
     Active Substance: CYCLOPHOSPHAMIDE
     Indication: LEUKAEMIA
     Dosage: UNK
     Route: 065
  12. ETOPOSIDE. [Suspect]
     Active Substance: ETOPOSIDE
     Indication: LYMPHOMA
  13. RITUXIMAB. [Suspect]
     Active Substance: RITUXIMAB
     Indication: LEUKAEMIA
     Dosage: UNK
     Route: 065
  14. RITUXIMAB. [Suspect]
     Active Substance: RITUXIMAB
     Indication: LYMPHOMA
     Dosage: UNK
     Route: 065

REACTIONS (3)
  - Hospitalisation [Unknown]
  - Off label use [Unknown]
  - Product use in unapproved indication [Unknown]
